FAERS Safety Report 8055873-0 (Version None)
Quarter: 2012Q1

REPORT INFORMATION
  Report Type: 
  Country: None (occurrence: None)
  Receive Date: 20120119
  Receipt Date: 20120119
  Transmission Date: 20120608
  Serious: Yes (Other)
  Sender: FDA-Public Use
  Company Number: None

PATIENT
  Age: 73 Year
  Sex: Female
  Weight: 68.038 kg

DRUGS (1)
  1. RECLAST [Suspect]
     Indication: MUSCULAR WEAKNESS
     Dosage: 15 MINUTE IV
     Route: 042
     Dates: start: 20110415, end: 20110415

REACTIONS (9)
  - HEADACHE [None]
  - QUALITY OF LIFE DECREASED [None]
  - INSOMNIA [None]
  - OEDEMA PERIPHERAL [None]
  - INFLUENZA [None]
  - DIARRHOEA [None]
  - PAIN [None]
  - VOMITING [None]
  - HYPOTENSION [None]
